FAERS Safety Report 4278196-4 (Version None)
Quarter: 2004Q1

REPORT INFORMATION
  Report Type: 
  Country: None (occurrence: None)
  Receive Date: 20040121
  Receipt Date: 20040106
  Transmission Date: 20041129
  Serious: Yes (Other)
  Sender: FDA-Public Use
  Company Number: 200320523US

PATIENT
  Age: 70 Year
  Sex: Female
  Weight: 67.3 kg

DRUGS (2)
  1. NASACORT AQ [Suspect]
     Indication: COUGH
     Dosage: QD IN
     Route: 045
     Dates: start: 20030912, end: 20030916
  2. RISEDRONATE SODIUM (ACTONEL) [Concomitant]

REACTIONS (5)
  - GINGIVAL DISORDER [None]
  - IMPAIRED HEALING [None]
  - ORAL PAIN [None]
  - OSTEOLYSIS [None]
  - TOOTH EXTRACTION [None]
